FAERS Safety Report 20634966 (Version 1)
Quarter: 2022Q1

REPORT INFORMATION
  Report Type: Report from Study
  Country: KR (occurrence: KR)
  Receive Date: 20220325
  Receipt Date: 20220325
  Transmission Date: 20220424
  Serious: Yes (Hospitalization)
  Sender: FDA-Public Use
  Company Number: KR-SA-SAC20220321001304

PATIENT
  Age: 29 Year
  Sex: Female
  Weight: 68 kg

DRUGS (11)
  1. DUPILUMAB [Suspect]
     Active Substance: DUPILUMAB
     Indication: Dermatitis atopic
     Dosage: 600 MG
     Dates: start: 20210317, end: 20210317
  2. DUPILUMAB [Suspect]
     Active Substance: DUPILUMAB
     Dosage: 300 MG, QOW
     Dates: start: 20210331
  3. XYZAL [Concomitant]
     Active Substance: LEVOCETIRIZINE DIHYDROCHLORIDE
     Dosage: 5 MG
     Dates: start: 20160315
  4. HYDROXYZINE HYDROCHLORIDE [Concomitant]
     Active Substance: HYDROXYZINE HYDROCHLORIDE
     Dosage: 10 MG
     Dates: start: 20170210
  5. CIPOL N [Concomitant]
     Dosage: 100 MG
     Dates: start: 20191024
  6. LEDERCORT [TRIAMCINOLONE] [Concomitant]
     Dosage: 4 MG
     Dates: start: 20150604, end: 20210323
  7. LAFUTIDINE [Concomitant]
     Active Substance: LAFUTIDINE
     Dosage: 10 MG
     Dates: start: 20180307
  8. PROTOPIC [Concomitant]
     Active Substance: TACROLIMUS
     Dosage: 10 G
     Dates: start: 20200904
  9. DESOWEN [Concomitant]
     Active Substance: DESONIDE
     Dosage: 120 ML
     Dates: start: 20161109
  10. CHLORPHENIRAMINE MALEATE HUONS [Concomitant]
     Dosage: 4 MG
     Dates: start: 20220105, end: 20220105
  11. HUMEDIX DEXAMETHASONE SODIUM PHOSPHATE [Concomitant]
     Dosage: UNK
     Dates: start: 20220105, end: 20220105

REACTIONS (1)
  - Ovarian cyst [Recovered/Resolved]

NARRATIVE: CASE EVENT DATE: 20220112
